FAERS Safety Report 6234126-7 (Version None)
Quarter: 2009Q2

REPORT INFORMATION
  Report Type: 
  Country: None (occurrence: None)
  Receive Date: 20090616
  Receipt Date: 20090616
  Transmission Date: 20091009
  Serious: Yes (Hospitalization)
  Sender: FDA-Public Use
  Company Number: None

PATIENT
  Age: 76 Year
  Sex: Male

DRUGS (12)
  1. WARFARIN SODIUM [Suspect]
     Indication: THROMBOSIS PROPHYLAXIS
     Dosage: 5MG DAILY PO
     Route: 048
  2. HYDRALAZINE HCL [Concomitant]
  3. COREG [Concomitant]
  4. ISOSORBIDE MONONITRATE [Concomitant]
  5. TYLENOL EXTRA STRENGTH 2 TABLETS [Concomitant]
  6. MULTI-VITAMIN [Concomitant]
  7. ALLOPURINOL [Concomitant]
  8. PROLSEC [Concomitant]
  9. TUMS [Concomitant]
  10. NIASPAN [Concomitant]
  11. ZOCOR [Concomitant]
  12. LOVAZA [Concomitant]

REACTIONS (3)
  - ANAEMIA [None]
  - INTERNATIONAL NORMALISED RATIO INCREASED [None]
  - SMALL INTESTINAL HAEMORRHAGE [None]
